FAERS Safety Report 9752161 (Version 1)
Quarter: 2013Q4

REPORT INFORMATION
  Report Type: Spontaneous
  Country: JP (occurrence: None)
  Receive Date: 20131211
  Receipt Date: 20131211
  Transmission Date: 20140711
  Serious: Yes (Hospitalization)
  Sender: FDA-Public Use
  Company Number: FK201305256

PATIENT
  Age: 68 Year
  Sex: Female

DRUGS (2)
  1. CARBOPLATIN (CARBOPLATIN) [Suspect]
     Indication: NEUROENDOCRINE CARCINOMA
  2. ETOPOSIDE (ETOPOSIDE) [Suspect]
     Indication: NEUROENDOCRINE CARCINOMA

REACTIONS (1)
  - Paraneoplastic neurological syndrome [None]
